FAERS Safety Report 25791656 (Version 1)
Quarter: 2025Q3

REPORT INFORMATION
  Report Type: Spontaneous
  Country: CN (occurrence: CN)
  Receive Date: 20250911
  Receipt Date: 20250911
  Transmission Date: 20251021
  Serious: Yes (Life-Threatening, Other)
  Sender: MERCK SHARP & DOHME LLC
  Company Number: CN-009507513-2326001

PATIENT
  Age: 33 Year
  Sex: Female

DRUGS (2)
  1. PEMBROLIZUMAB [Suspect]
     Active Substance: PEMBROLIZUMAB
     Indication: Malignant melanoma
     Dosage: 100MG EVERY 21 DAYS
     Route: 042
     Dates: start: 20220705, end: 20250804
  2. NELVUTAMIG [Suspect]
     Active Substance: NELVUTAMIG
     Indication: Malignant melanoma
     Dosage: 150MG, EVERY 21 DAYS
     Route: 042
     Dates: start: 20220705, end: 20250804

REACTIONS (4)
  - Immune thrombocytopenia [Recovering/Resolving]
  - Underdose [Unknown]
  - Neutrophil count decreased [Recovering/Resolving]
  - Radiation induced encephalopathy [Unknown]

NARRATIVE: CASE EVENT DATE: 20220705
